FAERS Safety Report 6312047-9 (Version None)
Quarter: 2009Q3

REPORT INFORMATION
  Report Type: 
  Country: None (occurrence: None)
  Receive Date: 20090817
  Receipt Date: 20090811
  Transmission Date: 20100115
  Serious: Yes (Other)
  Sender: FDA-Public Use
  Company Number: PHHY2009CA30356

PATIENT
  Sex: Female

DRUGS (1)
  1. SANDOSTATIN LAR [Suspect]
     Indication: CARCINOID TUMOUR
     Dosage: 20 MG EVERY 3 WEEKS
     Route: 030
     Dates: start: 20061026

REACTIONS (5)
  - AMNESIA [None]
  - ASTHENIA [None]
  - BLOOD PRESSURE DECREASED [None]
  - SOMNOLENCE [None]
  - VISION BLURRED [None]
